FAERS Safety Report 6425132-8 (Version None)
Quarter: 2009Q4

REPORT INFORMATION
  Report Type: 
  Country: None (occurrence: None)
  Receive Date: 20091103
  Receipt Date: 20091026
  Transmission Date: 20100525
  Serious: Yes (Other)
  Sender: FDA-Public Use
  Company Number: US-WYE-H03846208

PATIENT
  Sex: Female

DRUGS (4)
  1. PREMARIN [Suspect]
  2. ESTRADIOL VALERATE [Suspect]
  3. ESTRADERM [Suspect]
  4. PROVERA [Suspect]

REACTIONS (2)
  - BREAST CANCER [None]
  - GALLBLADDER OPERATION [None]
